FAERS Safety Report 17543754 (Version 2)
Quarter: 2021Q3

REPORT INFORMATION
  Report Type: Spontaneous
  Country: CH (occurrence: CH)
  Receive Date: 20200316
  Receipt Date: 20210805
  Transmission Date: 20211014
  Serious: Yes (Other)
  Sender: FDA-Public Use
  Company Number: CH-TEVA-2020-CH-1205030

PATIENT
  Age: 68 Year
  Sex: Female

DRUGS (7)
  1. DAFALGAN [Suspect]
     Active Substance: ACETAMINOPHEN
     Dosage: 4 GRAM DAILY;
     Route: 048
     Dates: start: 20200226, end: 20200226
  2. CO?AMOXICILIN [Concomitant]
     Dates: end: 20200217
  3. IRFEN [Suspect]
     Active Substance: IBUPROFEN
     Dosage: 1200 MILLIGRAM DAILY;
     Route: 048
     Dates: start: 20200226, end: 20200226
  4. CEFTRIAXONE. [Concomitant]
     Active Substance: CEFTRIAXONE
     Dosage: IN TOTAL
     Dates: start: 20200225, end: 20200225
  5. NEXIUM [Suspect]
     Active Substance: ESOMEPRAZOLE MAGNESIUM
     Dosage: 40 MILLIGRAM DAILY; IN TOTAL
     Route: 048
     Dates: start: 20200226, end: 20200226
  6. PREDNISONE. [Concomitant]
     Active Substance: PREDNISONE
     Dates: end: 20200215
  7. METRONIDAZOLE. [Concomitant]
     Active Substance: METRONIDAZOLE
     Dosage: IN TOTAL
     Dates: start: 20200225, end: 20200225

REACTIONS (1)
  - Mixed liver injury [Recovered/Resolved]

NARRATIVE: CASE EVENT DATE: 20200226
